FAERS Safety Report 23980711 (Version 11)
Quarter: 2025Q3

REPORT INFORMATION
  Report Type: Report from Study
  Country: CA (occurrence: CA)
  Receive Date: 20240617
  Receipt Date: 20250708
  Transmission Date: 20251021
  Serious: Yes (Hospitalization, Other)
  Sender: TAKEDA
  Company Number: CA-TAKEDA-2024TUS058867

PATIENT
  Age: 63 Year
  Sex: Male

DRUGS (15)
  1. VEDOLIZUMAB [Suspect]
     Active Substance: VEDOLIZUMAB
     Indication: Crohn^s disease
  2. VEDOLIZUMAB [Suspect]
     Active Substance: VEDOLIZUMAB
     Dosage: 300 MILLIGRAM, Q4WEEKS
     Dates: start: 20241213
  3. VEDOLIZUMAB [Suspect]
     Active Substance: VEDOLIZUMAB
     Dosage: 300 MILLIGRAM, Q4WEEKS
  4. AMINOSALICYLIC ACID [Suspect]
     Active Substance: AMINOSALICYLIC ACID
     Indication: Product used for unknown indication
  5. CELLCEPT [Suspect]
     Active Substance: MYCOPHENOLATE MOFETIL
     Indication: Liver disorder
  6. CELLCEPT [Suspect]
     Active Substance: MYCOPHENOLATE MOFETIL
     Indication: Lung disorder
  7. SYNTHROID [Concomitant]
     Active Substance: LEVOTHYROXINE SODIUM
  8. ASPIRIN [Concomitant]
     Active Substance: ASPIRIN
  9. IRON [Concomitant]
     Active Substance: IRON
  10. ESOMEPRAZOLE [Concomitant]
     Active Substance: ESOMEPRAZOLE
  11. VENLAFAXINE [Concomitant]
     Active Substance: VENLAFAXINE HYDROCHLORIDE
  12. PREDNISONE [Concomitant]
     Active Substance: PREDNISONE
  13. TYLENOL [Concomitant]
     Active Substance: ACETAMINOPHEN
  14. MESALAMINE [Concomitant]
     Active Substance: MESALAMINE
  15. MYCOPHENOLATE MOFETIL [Concomitant]
     Active Substance: MYCOPHENOLATE MOFETIL

REACTIONS (15)
  - Crohn^s disease [Not Recovered/Not Resolved]
  - Haematochezia [Not Recovered/Not Resolved]
  - Coronary artery occlusion [Unknown]
  - Mucous stools [Not Recovered/Not Resolved]
  - Anal fistula [Recovering/Resolving]
  - Drug ineffective [Not Recovered/Not Resolved]
  - COVID-19 [Unknown]
  - Diarrhoea [Recovering/Resolving]
  - Abdominal pain upper [Unknown]
  - Defaecation urgency [Not Recovered/Not Resolved]
  - Rectal tenesmus [Not Recovered/Not Resolved]
  - Haemoglobin decreased [Unknown]
  - Off label use [Unknown]
  - Abdominal pain [Recovering/Resolving]
  - Haemorrhoids [Not Recovered/Not Resolved]

NARRATIVE: CASE EVENT DATE: 20241213
